FAERS Safety Report 11445815 (Version 1)
Quarter: 2015Q3

REPORT INFORMATION
  Report Type: Spontaneous
  Country: DK (occurrence: DK)
  Receive Date: 20150902
  Receipt Date: 20150902
  Transmission Date: 20151125
  Serious: Yes (Other)
  Sender: FDA-Public Use
  Company Number: DK-TEVA-589900ISR

PATIENT
  Age: 26 Year
  Sex: Female

DRUGS (4)
  1. COMBAR [Concomitant]
     Indication: DEPRESSION
  2. ISOTRETINOIN [Suspect]
     Active Substance: ISOTRETINOIN
     Indication: ACNE
     Dosage: DOSAGE: 0,1 - 1 MG/KG. THE PRECISE DOSAGE IS UNKNOWN.
     Route: 065
     Dates: start: 2007, end: 2007
  3. MALONETTA [Concomitant]
     Active Substance: ETHINYL ESTRADIOL\LEVONORGESTREL
     Indication: CONTRACEPTION
  4. CITALOPRAM ^ALTERNOVA^ [Concomitant]
     Indication: DEPRESSION

REACTIONS (2)
  - Vision blurred [Not Recovered/Not Resolved]
  - Keratoconus [Not Recovered/Not Resolved]

NARRATIVE: CASE EVENT DATE: 2007
